FAERS Safety Report 20564867 (Version 2)
Quarter: 2022Q1

REPORT INFORMATION
  Report Type: Spontaneous
  Country: US (occurrence: US)
  Receive Date: 20220308
  Receipt Date: 20220308
  Transmission Date: 20220424
  Serious: No
  Sender: FDA-Public Use
  Company Number: US-ALLERGAN-2126014US

PATIENT
  Age: 78 Year
  Sex: Female

DRUGS (11)
  1. ESTRACE [Suspect]
     Active Substance: ESTRADIOL
     Indication: Urinary incontinence
     Dosage: 0.5 MG, QD (0.5 MG DAILY FOR TWO WEEKS THEN TWICE A WEEK)
     Route: 067
  2. ESTRACE [Suspect]
     Active Substance: ESTRADIOL
     Indication: Urinary incontinence
     Dosage: 5 GRAMS ONE TIME
     Route: 067
     Dates: start: 20210715
  3. ESTRACE [Suspect]
     Active Substance: ESTRADIOL
  4. DILTIAZEM [Concomitant]
     Active Substance: DILTIAZEM
     Indication: Hypertension
  5. INDAPAMIDE [Concomitant]
     Active Substance: INDAPAMIDE
     Indication: Diuretic therapy
  6. LISINOPRIL [Concomitant]
     Active Substance: LISINOPRIL
     Indication: Hypertension
  7. XARELTO [Concomitant]
     Active Substance: RIVAROXABAN
     Indication: Atrial fibrillation
  8. OMEPRAZOLE [Concomitant]
     Active Substance: OMEPRAZOLE
     Indication: Gastrooesophageal reflux disease
  9. FLOVENT HFA [Concomitant]
     Active Substance: FLUTICASONE PROPIONATE
     Indication: Asthma
  10. POTASSIUM CHLORIDE [Concomitant]
     Active Substance: POTASSIUM CHLORIDE
     Indication: Diuretic therapy
  11. Unknown over the counter medications [Concomitant]

REACTIONS (6)
  - Urinary incontinence [Unknown]
  - Neuralgia [Recovered/Resolved]
  - Off label use [Unknown]
  - Incorrect dose administered [Unknown]
  - Abdominal pain [Recovered/Resolved]
  - Product complaint [Unknown]

NARRATIVE: CASE EVENT DATE: 20210716
